FAERS Safety Report 9653258 (Version 2)
Quarter: 2013Q4

REPORT INFORMATION
  Report Type: Spontaneous
  Country: US (occurrence: US)
  Receive Date: 20131029
  Receipt Date: 20131105
  Transmission Date: 20140711
  Serious: Yes (Hospitalization, Other)
  Sender: FDA-Public Use
  Company Number: US-BAXTER-2013BAX041763

PATIENT
  Age: 51 Year
  Sex: Male

DRUGS (1)
  1. ADVATE [Suspect]
     Indication: HAEMOPHILIA
     Route: 042

REACTIONS (2)
  - Staphylococcal infection [Unknown]
  - Arthritis infective [Unknown]
